FAERS Safety Report 9542298 (Version 2)
Quarter: 2013Q4

REPORT INFORMATION
  Report Type: Spontaneous
  Country: DE (occurrence: DE)
  Receive Date: 20130923
  Receipt Date: 20131024
  Transmission Date: 20140711
  Serious: Yes (Death, Life-Threatening, Hospitalization)
  Sender: FDA-Public Use
  Company Number: DE-SANOFI-AVENTIS-2013SA091890

PATIENT
  Age: 68 Year
  Sex: Female
  Weight: 57 kg

DRUGS (4)
  1. AFLIBERCEPT [Suspect]
     Indication: COLORECTAL CANCER
     Route: 042
     Dates: start: 20130731, end: 20130731
  2. DEXAMETHASONE [Concomitant]
     Indication: ANTIEMETIC SUPPORTIVE CARE
     Route: 042
  3. VITAMIN B12 [Concomitant]
     Indication: ANAEMIA
     Route: 030
  4. L-THYROXIN [Concomitant]
     Indication: HYPOTHYROIDISM
     Route: 048

REACTIONS (3)
  - Cerebral haemorrhage [Fatal]
  - Hypertensive crisis [Fatal]
  - Headache [Fatal]
